FAERS Safety Report 9151951 (Version 1)
Quarter: 2013Q1

REPORT INFORMATION
  Report Type: Spontaneous
  Country: ES (occurrence: ES)
  Receive Date: 20130308
  Receipt Date: 20130308
  Transmission Date: 20140127
  Serious: Yes (Hospitalization)
  Sender: FDA-Public Use
  Company Number: ES-ELI_LILLY_AND_COMPANY-ES201303002528

PATIENT
  Age: 56 Year
  Sex: Female

DRUGS (5)
  1. FORSTEO [Suspect]
     Indication: OSTEOPOROSIS
     Dosage: 20 UG, UNKNOWN
     Route: 058
     Dates: start: 200802
  2. CALCIUM [Concomitant]
  3. LEXATIN [Concomitant]
  4. FOLIC ACID [Concomitant]
  5. INSULIN [Concomitant]

REACTIONS (1)
  - Colitis ulcerative [Recovering/Resolving]
